FAERS Safety Report 6920268-7 (Version None)
Quarter: 2010Q3

REPORT INFORMATION
  Report Type: 
  Country: None (occurrence: None)
  Receive Date: 20100811
  Receipt Date: 20100805
  Transmission Date: 20110219
  Serious: Yes (Death, Other)
  Sender: FDA-Public Use
  Company Number: US-AMGEN-QUU410822

PATIENT
  Sex: Male

DRUGS (20)
  1. NPLATE [Suspect]
     Indication: THROMBOCYTOPENIA
     Dates: start: 20090511, end: 20091028
  2. CORTICOSTEROIDS [Concomitant]
     Dates: start: 20090428
  3. RITUXIMAB [Concomitant]
     Dates: start: 20090228
  4. NEUMEGA [Concomitant]
     Dates: start: 20090420
  5. ADVAIR DISKUS 100/50 [Concomitant]
  6. AMITRIPTYLINE HYDROCHLORIDE [Concomitant]
  7. DIGITEK [Concomitant]
  8. IRON [Concomitant]
  9. LACTULOSE [Concomitant]
  10. MEGACE [Concomitant]
  11. METOPROLOL [Concomitant]
  12. NEXIUM [Concomitant]
  13. OXYCONTIN [Concomitant]
  14. PERCOCET [Concomitant]
  15. PHENERGAN [Concomitant]
  16. POTASSIUM [Concomitant]
  17. PRILOSEC [Concomitant]
  18. ZANTAC [Concomitant]
  19. ZOLOFT [Concomitant]
  20. MULTI-VITAMINS [Concomitant]

REACTIONS (2)
  - NON-HODGKIN'S LYMPHOMA [None]
  - PANCYTOPENIA [None]
